FAERS Safety Report 9761678 (Version 1)
Quarter: 2013Q4

REPORT INFORMATION
  Report Type: Spontaneous
  Country: GB (occurrence: GB)
  Receive Date: 20131216
  Receipt Date: 20131216
  Transmission Date: 20140711
  Serious: Yes (Hospitalization, Other)
  Sender: FDA-Public Use
  Company Number: GB-MYLANLABS-2013S1027327

PATIENT
  Age: 59 Year
  Sex: Female
  Weight: 60 kg

DRUGS (8)
  1. BISOPROLOL [Suspect]
     Indication: ATRIAL FIBRILLATION
     Route: 048
  2. PALIPERIDONE [Suspect]
     Indication: SCHIZOPHRENIA
     Route: 030
  3. TRIMETHOPRIM [Suspect]
     Indication: URINARY TRACT INFECTION
     Route: 048
     Dates: start: 20130830
  4. CARBAMAZEPINE [Concomitant]
     Indication: AFFECTIVE DISORDER
     Route: 048
  5. CARBIMAZOLE [Concomitant]
     Indication: PRODUCT USED FOR UNKNOWN INDICATION
     Route: 048
  6. LORAZEPAM [Concomitant]
     Indication: PRODUCT USED FOR UNKNOWN INDICATION
     Route: 048
  7. RISPERIDONE [Concomitant]
     Indication: PRODUCT USED FOR UNKNOWN INDICATION
     Route: 048
  8. VALPROIC ACID [Concomitant]
     Indication: AFFECTIVE DISORDER
     Route: 048

REACTIONS (2)
  - Bradycardia [Recovered/Resolved]
  - Toxicity to various agents [Recovered/Resolved]
